FAERS Safety Report 5191981-X (Version None)
Quarter: 2006Q4

REPORT INFORMATION
  Report Type: 
  Country: None (occurrence: None)
  Receive Date: 20061227
  Receipt Date: 20061215
  Transmission Date: 20070319
  Serious: Yes (Hospitalization)
  Sender: FDA-Public Use
  Company Number: US-AMGEN-STX203711

PATIENT
  Sex: Female

DRUGS (1)
  1. ENBREL [Suspect]
     Indication: PSORIASIS
     Route: 065

REACTIONS (5)
  - FIBROMYALGIA [None]
  - GASTRIC BYPASS [None]
  - HYPERSOMNIA [None]
  - HYPOVITAMINOSIS [None]
  - NARCOLEPSY [None]
